FAERS Safety Report 6288894-9 (Version None)
Quarter: 2009Q3

REPORT INFORMATION
  Report Type: 
  Country: None (occurrence: None)
  Receive Date: 20090729
  Receipt Date: 20090717
  Transmission Date: 20100115
  Serious: Yes (Hospitalization)
  Sender: FDA-Public Use
  Company Number: DK-WYE-H08481709

PATIENT
  Age: 75 Year
  Sex: Female

DRUGS (9)
  1. CORDARONE [Suspect]
     Indication: ATRIAL FIBRILLATION
     Route: 048
     Dates: start: 20080506, end: 20090114
  2. KALEORID [Concomitant]
     Indication: MINERAL SUPPLEMENTATION
     Route: 048
  3. IMOZOP [Concomitant]
     Route: 048
  4. CITALOPRAM HYDROBROMIDE [Concomitant]
     Dosage: 10 MG (FREQUENCY UNSPECIFIED)
  5. MAREVAN [Concomitant]
     Dosage: DOSE ACCORDING TO SCHEDULE
     Route: 048
  6. SELO-ZOK [Concomitant]
     Route: 048
  7. SIMVASTATIN [Concomitant]
     Dosage: 20 MG (FREQUENCY UNSPECIFIED)
  8. FURIX [Concomitant]
     Indication: CARDIAC DISORDER
     Dosage: 40 MG (FREQUENCY UNSPECIFIED)
     Route: 048
  9. DIGOXIN [Concomitant]
     Route: 048

REACTIONS (5)
  - ANAEMIA [None]
  - ASTHENIA [None]
  - DYSPNOEA [None]
  - FATIGUE [None]
  - TREMOR [None]
